FAERS Safety Report 5662281-6 (Version None)
Quarter: 2008Q1

REPORT INFORMATION
  Report Type: 
  Country: None (occurrence: None)
  Receive Date: 20080312
  Receipt Date: 20080303
  Transmission Date: 20080703
  Serious: Yes (Hospitalization)
  Sender: FDA-Public Use
  Company Number: CN-MERCK-0802CHN00033

PATIENT
  Age: 80 Year
  Sex: Male

DRUGS (2)
  1. PROSCAR [Suspect]
     Indication: BENIGN PROSTATIC HYPERPLASIA
     Route: 048
     Dates: start: 20080117
  2. DIAZEPAM [Concomitant]
     Indication: INSOMNIA
     Route: 065
     Dates: start: 20080222, end: 20080222

REACTIONS (5)
  - CONSTIPATION [None]
  - INSOMNIA [None]
  - NOCTURIA [None]
  - PAIN [None]
  - POLLAKIURIA [None]
